FAERS Safety Report 4647192-7 (Version None)
Quarter: 2005Q2

REPORT INFORMATION
  Report Type: 
  Country: None (occurrence: None)
  Receive Date: 20050425
  Receipt Date: 20050419
  Transmission Date: 20051028
  Serious: Yes (Death, Hospitalization)
  Sender: FDA-Public Use
  Company Number: 2005-04-1072

PATIENT
  Age: 58 Year
  Sex: Male

DRUGS (2)
  1. PEG-INTRON [Suspect]
     Indication: HEPATITIS C
     Dosage: 150 MCG X 3 SUBCUTANEOUS
     Route: 058
     Dates: start: 20050409
  2. ALCOHOL ORALS [Suspect]
     Indication: ALCOHOLISM
     Dosage: BINGE ORAL
     Route: 048
     Dates: start: 20050414

REACTIONS (9)
  - ALCOHOL POISONING [None]
  - ALCOHOL WITHDRAWAL SYNDROME [None]
  - CIRRHOSIS ALCOHOLIC [None]
  - CONVULSION [None]
  - HEPATIC FAILURE [None]
  - INCORRECT DOSE ADMINISTERED [None]
  - MEMORY IMPAIRMENT [None]
  - PLATELET COUNT DECREASED [None]
  - SEPSIS [None]
